FAERS Safety Report 5736935-7 (Version None)
Quarter: 2008Q2

REPORT INFORMATION
  Report Type: 
  Country: None (occurrence: None)
  Receive Date: 20080509
  Receipt Date: 20080428
  Transmission Date: 20081010
  Serious: Yes (Life-Threatening, Hospitalization)
  Sender: FDA-Public Use
  Company Number: 2008AL003293

PATIENT
  Age: 31 Year
  Sex: Female

DRUGS (6)
  1. CITALOPRAM HYDROBROMIDE [Suspect]
     Indication: DEPRESSION
     Dosage: 10 MG; PO
     Route: 048
     Dates: start: 20051202, end: 20060322
  2. BENDROFLUMETHIAZIDE [Concomitant]
  3. IRBESARTAN [Concomitant]
  4. AMLODIPINE [Concomitant]
  5. ALBUTEROL [Concomitant]
  6. SALMETEROL/FLUTICASONE [Concomitant]

REACTIONS (1)
  - IDIOPATHIC THROMBOCYTOPENIC PURPURA [None]
